FAERS Safety Report 6904175-1 (Version None)
Quarter: 2010Q3

REPORT INFORMATION
  Report Type: 
  Country: None (occurrence: None)
  Receive Date: 20100804
  Receipt Date: 20090319
  Transmission Date: 20110219
  Serious: No
  Sender: FDA-Public Use
  Company Number: US-PFIZER INC-2009159501

PATIENT
  Sex: Female

DRUGS (9)
  1. LYRICA [Suspect]
     Indication: NERVOUS SYSTEM DISORDER
     Dosage: 75 MG, 2X/DAY
     Dates: start: 20081201
  2. LYRICA [Suspect]
     Indication: FIBROMYALGIA
  3. NEXIUM [Concomitant]
     Dosage: UNK
  4. MONTELUKAST SODIUM [Concomitant]
     Dosage: UNK
  5. SALBUTAMOL [Concomitant]
     Dosage: UNK
  6. ADVAIR DISKUS 100/50 [Concomitant]
     Dosage: UNK
  7. SYNTHROID [Concomitant]
     Dosage: 100 UG, UNK
     Dates: start: 20081201
  8. MONTELUKAST SODIUM [Concomitant]
     Dosage: UNK
  9. SALBUTAMOL [Concomitant]

REACTIONS (5)
  - DRUG INEFFECTIVE [None]
  - HEADACHE [None]
  - MUSCULOSKELETAL STIFFNESS [None]
  - OEDEMA PERIPHERAL [None]
  - PAIN IN EXTREMITY [None]
